FAERS Safety Report 4450394-6 (Version None)
Quarter: 2004Q3

REPORT INFORMATION
  Report Type: 
  Country: None (occurrence: None)
  Receive Date: 20040915
  Receipt Date: 20040910
  Transmission Date: 20050211
  Serious: Yes (Hospitalization)
  Sender: FDA-Public Use
  Company Number: CH-MERCK-0409CHE00020

PATIENT
  Age: 75 Year
  Sex: Female

DRUGS (11)
  1. ASPIRIN [Suspect]
     Route: 048
     Dates: end: 20040715
  2. BETAHISTINE HYDROCHLORIDE [Concomitant]
     Route: 048
  3. CALCIUM CARBONATE AND CHOLECALCIFEROL [Concomitant]
     Route: 048
  4. CLOMETHIAZOLE EDISYLATE [Concomitant]
     Route: 048
  5. HYPERICIN [Concomitant]
     Route: 048
  6. LORAZEPAM [Concomitant]
     Route: 048
  7. METHAQUALONE HYDROCHLORIDE [Concomitant]
     Route: 048
  8. PANTOPRAZOLE [Concomitant]
     Route: 048
  9. PIRETANIDE AND RAMIPRIL [Concomitant]
     Route: 048
  10. VIOXX [Suspect]
     Route: 048
     Dates: end: 20040715
  11. THIORIDAZINE [Concomitant]
     Route: 048

REACTIONS (3)
  - ANAEMIA [None]
  - HAEMATEMESIS [None]
  - OESOPHAGITIS [None]
